FAERS Safety Report 11318899 (Version 5)
Quarter: 2016Q1

REPORT INFORMATION
  Report Type: Spontaneous
  Country: US (occurrence: US)
  Receive Date: 20150729
  Receipt Date: 20160122
  Transmission Date: 20160525
  Serious: No
  Sender: FDA-Public Use
  Company Number: US-ACTELION PHARMACEUTICALS US, INC.-A-NJ2015-117881

PATIENT
  Age: 68 Year
  Sex: Female

DRUGS (4)
  1. REMODULIN [Suspect]
     Active Substance: TREPROSTINIL
     Indication: PRODUCT USED FOR UNKNOWN INDICATION
     Route: 065
  2. RIOCIGUAT [Concomitant]
     Active Substance: RIOCIGUAT
  3. OPSUMIT [Suspect]
     Active Substance: MACITENTAN
     Indication: PULMONARY HYPERTENSION
     Dosage: 10 MG, QD
     Route: 048
     Dates: start: 20140305
  4. COUMADIN [Concomitant]
     Active Substance: WARFARIN SODIUM

REACTIONS (11)
  - Catheter site discolouration [Unknown]
  - Catheter site pain [Unknown]
  - Infusion site swelling [Recovering/Resolving]
  - Nausea [Recovered/Resolved]
  - Infusion site abscess [Unknown]
  - Swelling [Unknown]
  - Catheter site infection [Recovered/Resolved]
  - Infusion site erythema [Unknown]
  - Abdominal discomfort [Unknown]
  - Infusion site vesicles [Unknown]
  - Diarrhoea [Unknown]
